FAERS Safety Report 24040921 (Version 1)
Quarter: 2024Q3

REPORT INFORMATION
  Report Type: Spontaneous
  Country: US (occurrence: US)
  Receive Date: 20240702
  Receipt Date: 20240702
  Transmission Date: 20241016
  Serious: Yes (Death, Hospitalization)
  Sender: VIFOR
  Company Number: US-Vifor (International) Inc.-VIT-2024-05728

PATIENT
  Age: 69 Year
  Sex: Female
  Weight: 119 kg

DRUGS (1)
  1. MIRCERA [Suspect]
     Active Substance: METHOXY POLYETHYLENE GLYCOL-EPOETIN BETA
     Indication: Nephrogenic anaemia
     Dosage: 1ST DOSE MIRCERA
     Route: 040
     Dates: start: 20240618, end: 20240618

REACTIONS (4)
  - Cardiac arrest [Fatal]
  - Unresponsive to stimuli [Fatal]
  - Pulse absent [Fatal]
  - Nausea [Unknown]

NARRATIVE: CASE EVENT DATE: 20240618
